FAERS Safety Report 5645346-4 (Version None)
Quarter: 2008Q1

REPORT INFORMATION
  Report Type: 
  Country: None (occurrence: None)
  Receive Date: 20080229
  Receipt Date: 20080220
  Transmission Date: 20080703
  Serious: Yes (Hospitalization)
  Sender: FDA-Public Use
  Company Number: B0509723A

PATIENT
  Age: 78 Year
  Sex: Female

DRUGS (2)
  1. ARIXTRA [Suspect]
     Dosage: 2.5MG PER DAY
     Route: 058
     Dates: start: 20070910, end: 20070919
  2. LOVENOX [Concomitant]
     Indication: PULMONARY EMBOLISM
     Dosage: 6000IUAX PER DAY
     Route: 058
     Dates: start: 20070919, end: 20070927

REACTIONS (10)
  - ABDOMINAL PAIN [None]
  - ANAEMIA [None]
  - CHEST PAIN [None]
  - MALAISE [None]
  - MUSCLE HAEMORRHAGE [None]
  - OXYGEN SATURATION DECREASED [None]
  - PAIN IN EXTREMITY [None]
  - PERITONEAL HAEMORRHAGE [None]
  - PULMONARY EMBOLISM [None]
  - SPLENIC HAEMATOMA [None]
